FAERS Safety Report 12567064 (Version 1)
Quarter: 2016Q3

REPORT INFORMATION
  Report Type: Spontaneous
  Country: IT (occurrence: IT)
  Receive Date: 20160718
  Receipt Date: 20160718
  Transmission Date: 20161109
  Serious: Yes (Hospitalization)
  Sender: FDA-Public Use
  Company Number: IT-IMPAX LABORATORIES, INC-2016-IPXL-00752

PATIENT
  Age: 34 Year
  Sex: Female

DRUGS (2)
  1. CABERGOLINE. [Suspect]
     Active Substance: CABERGOLINE
     Indication: PROLACTIN-PRODUCING PITUITARY TUMOUR
     Dosage: 0.5 MG, 1 /WEEK
     Route: 048
     Dates: start: 201306
  2. CABERGOLINE. [Suspect]
     Active Substance: CABERGOLINE
     Dosage: 0.25 MG, 1 /WEEK
     Route: 048
     Dates: start: 201310

REACTIONS (5)
  - Depressed mood [Unknown]
  - Apathy [Unknown]
  - Delusion [Recovering/Resolving]
  - Gambling [Recovering/Resolving]
  - Mania [Recovering/Resolving]
